FAERS Safety Report 12045928 (Version 6)
Quarter: 2017Q3

REPORT INFORMATION
  Report Type: Report from Study
  Country: FR (occurrence: FR)
  Receive Date: 20160208
  Receipt Date: 20170915
  Transmission Date: 20171127
  Serious: Yes (Hospitalization, Other)
  Sender: FDA-Public Use
  Company Number: PHHY2016FR014076

PATIENT
  Age: 37 Year
  Sex: Female

DRUGS (5)
  1. AFINITOR [Suspect]
     Active Substance: EVEROLIMUS
     Dosage: 5 MG
     Route: 048
     Dates: start: 20150615, end: 20160108
  2. EXEMESTANE. [Suspect]
     Active Substance: EXEMESTANE
     Indication: BREAST CANCER METASTATIC
     Dosage: 25 MG
     Route: 048
     Dates: start: 20150519, end: 20150608
  3. EXEMESTANE. [Suspect]
     Active Substance: EXEMESTANE
     Dosage: 25 UNK, UNK
     Route: 048
     Dates: start: 20150615, end: 20160108
  4. EPITOMAX [Concomitant]
     Active Substance: TOPIRAMATE
     Indication: MIGRAINE
     Dosage: 25 MG, BID
     Route: 065
  5. AFINITOR [Suspect]
     Active Substance: EVEROLIMUS
     Indication: BREAST CANCER METASTATIC
     Dosage: 10 MG
     Route: 048
     Dates: start: 20150519, end: 20150608

REACTIONS (12)
  - Lipase increased [Unknown]
  - Bile duct obstruction [Unknown]
  - Hepatocellular injury [Recovered/Resolved]
  - Impaired gastric emptying [Unknown]
  - Faeces pale [Unknown]
  - Jaundice [Unknown]
  - Metastases to liver [Unknown]
  - Migraine [Recovered/Resolved]
  - Nausea [Unknown]
  - Biliary dilatation [Unknown]
  - Cholestasis [Unknown]
  - Malignant neoplasm progression [Unknown]

NARRATIVE: CASE EVENT DATE: 20150609
